FAERS Safety Report 7002515-9 (Version None)
Quarter: 2010Q3

REPORT INFORMATION
  Report Type: 
  Country: None (occurrence: None)
  Receive Date: 20100920
  Receipt Date: 20090720
  Transmission Date: 20110219
  Serious: Yes (Other)
  Sender: FDA-Public Use
  Company Number: US-ASTRAZENECA-2007UW05884

PATIENT
  Sex: Male
  Weight: 127.9 kg

DRUGS (8)
  1. SEROQUEL [Suspect]
     Indication: SLEEP DISORDER
     Route: 048
     Dates: start: 20040219
  2. SEROQUEL [Suspect]
     Indication: AFFECTIVE DISORDER
     Route: 048
     Dates: start: 20040219
  3. ATENOLOL [Concomitant]
     Dosage: DECREASED TO 25 MG DAILY
     Dates: start: 20040602
  4. ZANTAC [Concomitant]
     Dates: start: 20040602
  5. XANAX [Concomitant]
     Dosage: 1 MG HALF TAB Q 6 TO 8 H AS NEEDED
     Dates: start: 20040602
  6. AMBIEN [Concomitant]
     Dates: start: 20040602
  7. DARVOCET-N 100 [Concomitant]
     Dosage: 1 TAB Q 4 H AS NEEDED
     Dates: start: 20040602
  8. ZOLOFT [Concomitant]
     Dates: start: 20040602

REACTIONS (5)
  - DIABETES MELLITUS [None]
  - KETOACIDOSIS [None]
  - PANCREATITIS [None]
  - TYPE 1 DIABETES MELLITUS [None]
  - TYPE 2 DIABETES MELLITUS [None]
